FAERS Safety Report 8022799-8 (Version None)
Quarter: 2012Q1

REPORT INFORMATION
  Report Type: 
  Country: None (occurrence: None)
  Receive Date: 20120104
  Receipt Date: 20111228
  Transmission Date: 20120608
  Serious: Yes (Life-Threatening, Hospitalization)
  Sender: FDA-Public Use
  Company Number: JP-MERCK-1111USA03842

PATIENT
  Age: 63 Year
  Sex: Female
  Weight: 30 kg

DRUGS (6)
  1. ONEALFA [Concomitant]
     Indication: RENAL FAILURE CHRONIC
     Route: 065
     Dates: start: 20111101
  2. PEPCID RPD [Suspect]
     Indication: ABDOMINAL DISCOMFORT
     Route: 048
     Dates: start: 20111101, end: 20111121
  3. ALLOPURINOL [Concomitant]
     Indication: HYPERURICAEMIA
     Route: 065
  4. HERBS (UNSPECIFIED) [Concomitant]
     Indication: MALAISE
     Route: 065
     Dates: start: 20111115, end: 20111118
  5. LASIX [Suspect]
     Indication: OEDEMA
     Route: 048
     Dates: start: 20110401, end: 20111121
  6. EPOETIN BETA [Concomitant]
     Route: 065
     Dates: start: 20111115

REACTIONS (1)
  - INAPPROPRIATE ANTIDIURETIC HORMONE SECRETION [None]
